FAERS Safety Report 13605150 (Version 1)
Quarter: 2017Q2

REPORT INFORMATION
  Report Type: Spontaneous
  Country: US (occurrence: US)
  Receive Date: 20170601
  Receipt Date: 20170601
  Transmission Date: 20170830
  Serious: Yes (Other)
  Sender: FDA-Public Use
  Company Number: None

PATIENT
  Age: 54 Year
  Sex: Male
  Weight: 103.87 kg

DRUGS (7)
  1. VALACYCLOVIR [Concomitant]
     Active Substance: VALACYCLOVIR HYDROCHLORIDE
  2. CPAP [Concomitant]
     Active Substance: DEVICE
  3. MULTI-VITAMIN [Concomitant]
     Active Substance: .ALPHA.-TOCOPHEROL ACETATE, DL-\ASCORBIC ACID\CYANOCOBALAMIN\FLUORIDE ION\FOLIC ACID\NIACIN\PYRIDOXINE\RIBOFLAVIN\THIAMINE\VITAMIN A\VITAMIN D
  4. ATORVASTATIN TABS 10MG, GNENERIC FOR LIPITOR 10MG [Suspect]
     Active Substance: ATORVASTATIN
     Indication: BLOOD CHOLESTEROL INCREASED
     Dosage: ?          QUANTITY:1 TABLET ONCE A DAY;?
     Route: 048
     Dates: start: 20170122, end: 20170418
  5. ALLOPURINOL. [Concomitant]
     Active Substance: ALLOPURINOL
  6. SINUS DECONGESTANT [Concomitant]
  7. COLCRYS [Concomitant]
     Active Substance: COLCHICINE

REACTIONS (2)
  - Amnesia [None]
  - Confusional state [None]

NARRATIVE: CASE EVENT DATE: 20170418
